FAERS Safety Report 9921989 (Version 1)
Quarter: 2014Q1

REPORT INFORMATION
  Report Type: Spontaneous
  Country: US (occurrence: None)
  Receive Date: 20140221
  Receipt Date: 20140221
  Transmission Date: 20141002
  Serious: Yes (Disabling)
  Sender: FDA-Public Use
  Company Number: None

PATIENT
  Age: 76 Year
  Sex: Female
  Weight: 66.68 kg

DRUGS (1)
  1. LEVAQUIN [Suspect]
     Indication: BRONCHITIS
     Route: 048
     Dates: start: 20020210, end: 20140215

REACTIONS (5)
  - Dizziness [None]
  - Syncope [None]
  - Pain in extremity [None]
  - Skin discolouration [None]
  - Musculoskeletal disorder [None]
